FAERS Safety Report 7178169-8 (Version None)
Quarter: 2010Q4

REPORT INFORMATION
  Report Type: 
  Country: None (occurrence: None)
  Receive Date: 20101220
  Receipt Date: 20101215
  Transmission Date: 20110411
  Serious: Yes (Other)
  Sender: FDA-Public Use
  Company Number: Z0004988A

PATIENT
  Age: 53 Year
  Sex: Female
  Weight: 84.3 kg

DRUGS (2)
  1. LAPATINIB [Suspect]
     Route: 048
     Dates: start: 20090206
  2. VINORELBINE [Suspect]
     Dosage: 20MGM2 CYCLIC
     Route: 042
     Dates: start: 20090206, end: 20090220

REACTIONS (1)
  - NEUTROPENIA [None]
